FAERS Safety Report 18021551 (Version 1)
Quarter: 2020Q3

REPORT INFORMATION
  Report Type: Spontaneous
  Country: PL (occurrence: PL)
  Receive Date: 20200714
  Receipt Date: 20200714
  Transmission Date: 20201103
  Serious: Yes (Other)
  Sender: FDA-Public Use
  Company Number: PL-ALVOGEN-2020-ALVOGEN-108944

PATIENT
  Age: 65 Year
  Sex: Female

DRUGS (1)
  1. DAPSONE. [Suspect]
     Active Substance: DAPSONE
     Indication: ERYTHEMA ANNULARE

REACTIONS (3)
  - Dyspnoea [Unknown]
  - Therapy non-responder [Unknown]
  - Haemolytic anaemia [Unknown]
